FAERS Safety Report 4343009-9 (Version None)
Quarter: 2004Q2

REPORT INFORMATION
  Report Type: 
  Country: None (occurrence: None)
  Receive Date: 20040421
  Receipt Date: 20040414
  Transmission Date: 20050107
  Serious: Yes (Other)
  Sender: FDA-Public Use
  Company Number: PHBS2004CH04961

PATIENT
  Age: 64 Year
  Sex: Female

DRUGS (4)
  1. STARLIX [Suspect]
     Indication: DIABETES MELLITUS
     Dosage: 360 MG/DAY
     Dates: start: 20040222, end: 20040305
  2. METFORMIN HCL [Suspect]
     Indication: DIABETES MELLITUS
     Dosage: 1700 MG/DAY
     Dates: start: 20031113
  3. INFLAMAC [Concomitant]
     Dosage: UNK, PRN
  4. AMARYL [Concomitant]
     Dosage: 4 MG/DAY
     Dates: start: 20031113, end: 20040219

REACTIONS (2)
  - ERYTHEMA NODOSUM [None]
  - SKIN DISORDER [None]
